FAERS Safety Report 6733079-2 (Version None)
Quarter: 2010Q2

REPORT INFORMATION
  Report Type: 
  Country: None (occurrence: None)
  Receive Date: 20100518
  Receipt Date: 20100508
  Transmission Date: 20101027
  Serious: Yes (Hospitalization)
  Sender: FDA-Public Use
  Company Number: WAES 1005USA01482

PATIENT
  Age: 67 Year
  Sex: Female

DRUGS (5)
  1. FOSAMAX [Suspect]
     Indication: OSTEOPOROSIS
     Dosage: 35 MG/WKY, PO
     Route: 048
     Dates: start: 20090626, end: 20100507
  2. CALCIUM CARBONATE [Suspect]
     Indication: OSTEOPOROSIS
     Dosage: 2 TAB/DAILY, PO
     Route: 048
     Dates: start: 20090528, end: 20100508
  3. SUMILU (FELBINAC) [Suspect]
     Indication: BACK PAIN
     Dosage: TOPICAL
     Route: 061
     Dates: start: 20091027
  4. VOLTAREN [Suspect]
     Indication: MUSCULOSKELETAL PAIN
     Dosage: PO
     Route: 048
     Dates: start: 20091027
  5. POWD MM POWDER (ALUMINUM HYDROXIDE (+) BIODIASTASE [Suspect]
     Indication: PROPHYLAXIS AGAINST GASTROINTESTINAL ULCER
     Dosage: PO
     Route: 048
     Dates: start: 20100420

REACTIONS (2)
  - PALPITATIONS [None]
  - PULMONARY EMBOLISM [None]
